FAERS Safety Report 6455281-X (Version None)
Quarter: 2009Q4

REPORT INFORMATION
  Report Type: 
  Country: None (occurrence: None)
  Receive Date: 20091119
  Receipt Date: 20091110
  Transmission Date: 20100525
  Serious: Yes (Hospitalization)
  Sender: FDA-Public Use
  Company Number: 2009EU004254

PATIENT
  Age: 57 Year
  Sex: Female

DRUGS (3)
  1. VESICARE [Suspect]
     Indication: URINARY RETENTION
     Dosage: 10MG, /D, ORAL
     Route: 048
     Dates: start: 20080306, end: 20091029
  2. NITROFURANTOIN [Suspect]
     Dosage: 100 MG, /D, ORAL
     Route: 048
     Dates: start: 20061018, end: 20091020
  3. LANSOPRAZOLE [Concomitant]

REACTIONS (3)
  - BLOOD ELECTROLYTES INCREASED [None]
  - BLOOD UREA INCREASED [None]
  - JAUNDICE CHOLESTATIC [None]
